FAERS Safety Report 24979828 (Version 3)
Quarter: 2025Q2

REPORT INFORMATION
  Report Type: Spontaneous
  Country: PT (occurrence: PT)
  Receive Date: 20250218
  Receipt Date: 20250625
  Transmission Date: 20250716
  Serious: Yes (Other)
  Sender: TEVA
  Company Number: None

PATIENT
  Age: 83 Year
  Sex: Female

DRUGS (4)
  1. ATORVASTATIN [Suspect]
     Active Substance: ATORVASTATIN
     Indication: Product used for unknown indication
     Dosage: 1 CUP AT DINNER
     Route: 048
     Dates: start: 20250114
  2. BILASTINE [Concomitant]
     Active Substance: BILASTINE
     Indication: Cough
     Dosage: 1 COMP AT DINNER
     Dates: start: 20250114
  3. Valsartan  hydrochlorothiazide [Concomitant]
     Indication: Product used for unknown indication
  4. BUDESONIDE [Suspect]
     Active Substance: BUDESONIDE
     Indication: Cough
     Dosage: 1 PUFF FOR BREAKFAST FOR 1 WEEK
     Route: 045
     Dates: start: 20250114, end: 20250120

REACTIONS (2)
  - Erythema [Recovered/Resolved]
  - Rash [Recovered/Resolved]

NARRATIVE: CASE EVENT DATE: 20250120
